FAERS Safety Report 21357036 (Version 4)
Quarter: 2022Q4

REPORT INFORMATION
  Report Type: Spontaneous
  Country: US (occurrence: US)
  Receive Date: 20220921
  Receipt Date: 20221001
  Transmission Date: 20230112
  Serious: No
  Sender: FDA-Public Use
  Company Number: US-UNITED THERAPEUTICS-UNT-2022-020263

PATIENT
  Age: 46 Year
  Sex: Female
  Weight: 63.492 kg

DRUGS (7)
  1. REMODULIN [Suspect]
     Active Substance: TREPROSTINIL
     Indication: Pulmonary arterial hypertension
     Dosage: UNK, CONTINUING
     Route: 058
     Dates: start: 20220826
  2. REMODULIN [Suspect]
     Active Substance: TREPROSTINIL
     Dosage: 0.130 ?G/KG, CONTINUING (PRE-FILLED WITH 3 ML PER CASSETTE; PUMP RATE 47 MCL/HOUR)
     Route: 058
     Dates: start: 202208
  3. REMODULIN [Suspect]
     Active Substance: TREPROSTINIL
     Dosage: 0.142 ?G/KG, CONTINUING (PRE-FILLED WITH 3 ML/CASSETTE PUMP RATE OF 51 MCL/HOUR)
     Route: 058
     Dates: start: 2022
  4. REMODULIN [Suspect]
     Active Substance: TREPROSTINIL
     Dosage: 0.151 ?G/KG, CONTINUING (PRE-FILLED WITH 3 ML/CASSETTE PUMP RATE OF 54 MCL/HOUR)
     Route: 058
     Dates: start: 2022
  5. REMODULIN [Suspect]
     Active Substance: TREPROSTINIL
     Dosage: 0.060 ?G/KG, CONTINUING
     Route: 058
     Dates: start: 202209
  6. TADALAFIL [Concomitant]
     Active Substance: TADALAFIL
     Indication: Product used for unknown indication
     Dosage: UNK
     Route: 065
  7. AMBRISENTAN [Concomitant]
     Active Substance: AMBRISENTAN
     Indication: Product used for unknown indication
     Dosage: UNK
     Route: 065

REACTIONS (17)
  - Infusion site discomfort [Unknown]
  - Infusion site pain [Unknown]
  - Nausea [Unknown]
  - Infusion site erythema [Unknown]
  - Infusion site swelling [Unknown]
  - Weight decreased [Unknown]
  - Device difficult to use [Unknown]
  - Device malfunction [Unknown]
  - Infusion site irritation [Unknown]
  - Infusion site haemorrhage [Unknown]
  - Dizziness [Recovered/Resolved]
  - Pallor [Recovered/Resolved]
  - Wrong technique in device usage process [Unknown]
  - Accidental overdose [Recovered/Resolved]
  - Headache [Unknown]
  - Fatigue [Unknown]
  - Diarrhoea [Unknown]

NARRATIVE: CASE EVENT DATE: 20020923
